FAERS Safety Report 4509837-1 (Version None)
Quarter: 2004Q4

REPORT INFORMATION
  Report Type: 
  Country: None (occurrence: None)
  Receive Date: 20041124
  Receipt Date: 20041110
  Transmission Date: 20050328
  Serious: Yes (Hospitalization)
  Sender: FDA-Public Use
  Company Number: PHBS2004JP15202

PATIENT
  Age: 66 Year
  Sex: Male

DRUGS (7)
  1. LUDIOMIL [Suspect]
     Indication: DEPRESSION
     Dosage: 25 MG/D
     Route: 048
  2. LUDIOMIL [Suspect]
     Dosage: 12.5-25 MG/DAY
     Route: 048
  3. LITHIUM CARBONATE [Suspect]
     Indication: MANIA
     Dosage: 400 MG/D
     Route: 048
  4. LOXOPROFEN [Suspect]
     Indication: HEADACHE
     Dosage: 180 MG/D
     Route: 048
  5. FLUVOXAMINE MALEATE [Concomitant]
     Indication: DEPRESSION
     Dosage: 75 MG/D
     Route: 048
  6. PHENOBARBITAL TAB [Concomitant]
     Dosage: 180 MG/DAY
  7. ZONISAMIDE [Concomitant]
     Dosage: 200 MG/DAY

REACTIONS (31)
  - ABNORMAL BEHAVIOUR [None]
  - ANTIPSYCHOTIC DRUG LEVEL ABOVE THERAPEUTIC [None]
  - APATHY [None]
  - BLOOD CREATININE INCREASED [None]
  - BLOOD THYROID STIMULATING HORMONE INCREASED [None]
  - BLOOD UREA INCREASED [None]
  - BRADYKINESIA [None]
  - CEREBELLAR ATROPHY [None]
  - CEREBELLAR SYNDROME [None]
  - CONVULSION [None]
  - DEMENTIA [None]
  - DEPRESSED LEVEL OF CONSCIOUSNESS [None]
  - DEPRESSION [None]
  - DIFFICULTY IN WALKING [None]
  - DISORIENTATION [None]
  - DISTURBANCE IN ATTENTION [None]
  - DRUG INTERACTION [None]
  - DYSSTASIA [None]
  - ELECTROENCEPHALOGRAM ABNORMAL [None]
  - HYPOTHYROIDISM [None]
  - INSOMNIA [None]
  - MANIA [None]
  - MASKED FACIES [None]
  - MEMORY IMPAIRMENT [None]
  - MUSCLE RIGIDITY [None]
  - NUCLEAR MAGNETIC RESONANCE IMAGING BRAIN ABNORMAL [None]
  - PARKINSONISM [None]
  - POSTOPERATIVE INFECTION [None]
  - SOMNOLENCE [None]
  - THERAPEUTIC AGENT TOXICITY [None]
  - TREMOR [None]
